FAERS Safety Report 13282728 (Version 1)
Quarter: 2017Q1

REPORT INFORMATION
  Report Type: Spontaneous
  Country: US (occurrence: US)
  Receive Date: 20170301
  Receipt Date: 20170301
  Transmission Date: 20170428
  Serious: No
  Sender: FDA-Public Use
  Company Number: US-ABBVIE-16P-163-1711325-00

PATIENT
  Sex: Male

DRUGS (2)
  1. ANDROGEL [Suspect]
     Active Substance: TESTOSTERONE
     Indication: HYPOGONADISM
     Route: 061
  2. ANDROGEL [Suspect]
     Active Substance: TESTOSTERONE
     Indication: HYPOGONADISM
     Route: 061

REACTIONS (21)
  - Abnormal behaviour [Recovered/Resolved]
  - Hypomania [Recovered/Resolved]
  - Aggression [Recovered/Resolved]
  - Disturbance in attention [Recovered/Resolved]
  - Euphoric mood [Recovered/Resolved]
  - Judgement impaired [Recovered/Resolved]
  - Compulsive shopping [Recovered/Resolved]
  - Crying [Recovered/Resolved]
  - Compulsive sexual behaviour [Recovered/Resolved]
  - Tachyphrenia [Recovered/Resolved]
  - Disinhibition [Recovered/Resolved]
  - Grandiosity [Recovered/Resolved]
  - Impulse-control disorder [Recovered/Resolved]
  - Memory impairment [Recovered/Resolved]
  - Aphasia [Recovered/Resolved]
  - Blood testosterone decreased [Recovered/Resolved]
  - Energy increased [Recovered/Resolved]
  - Fatigue [Recovered/Resolved]
  - Blood testosterone increased [Recovered/Resolved]
  - Psychomotor hyperactivity [Recovered/Resolved]
  - Speech disorder [Recovered/Resolved]

NARRATIVE: CASE EVENT DATE: 20120913
